FAERS Safety Report 20981833 (Version 3)
Quarter: 2022Q4

REPORT INFORMATION
  Report Type: Spontaneous
  Country: US (occurrence: US)
  Receive Date: 20220620
  Receipt Date: 20221123
  Transmission Date: 20230113
  Serious: No
  Sender: FDA-Public Use
  Company Number: US-PFIZER INC-PV202200004945

PATIENT
  Age: 60 Year
  Sex: Female

DRUGS (3)
  1. IBRANCE [Suspect]
     Active Substance: PALBOCICLIB
     Indication: Breast cancer female
     Dosage: TAKE 1 TABLET BY MOUTH EVERY DAY FOR 21 DAYS THEN 7 DAYS OFF
     Route: 048
     Dates: start: 20220630
  2. LETROZOLE [Concomitant]
     Active Substance: LETROZOLE
     Dosage: POW
  3. LETROZOLE [Concomitant]
     Active Substance: LETROZOLE
     Dosage: UNK

REACTIONS (2)
  - Fatigue [Unknown]
  - Insomnia [Not Recovered/Not Resolved]
